FAERS Safety Report 25802139 (Version 1)
Quarter: 2025Q3

REPORT INFORMATION
  Report Type: Report from Study
  Country: CN (occurrence: CN)
  Receive Date: 20250915
  Receipt Date: 20250915
  Transmission Date: 20251020
  Serious: Yes (Other)
  Sender: ROCHE
  Company Number: CN-ROCHE-10000385263

PATIENT

DRUGS (35)
  1. BEVACIZUMAB [Suspect]
     Active Substance: BEVACIZUMAB
     Indication: Cervix carcinoma
     Dosage: FOR SIX CYCLES
     Route: 065
  2. BEVACIZUMAB [Suspect]
     Active Substance: BEVACIZUMAB
     Indication: Endometrial cancer
  3. BEVACIZUMAB [Suspect]
     Active Substance: BEVACIZUMAB
     Indication: Endometrial sarcoma
  4. BEVACIZUMAB [Suspect]
     Active Substance: BEVACIZUMAB
     Indication: Genitourinary melanoma
  5. BEVACIZUMAB [Suspect]
     Active Substance: BEVACIZUMAB
     Indication: Vulval cancer
  6. BEVACIZUMAB [Suspect]
     Active Substance: BEVACIZUMAB
     Indication: Choriocarcinoma
  7. BEVACIZUMAB [Suspect]
     Active Substance: BEVACIZUMAB
     Indication: Ovarian cancer
  8. CADONILIMAB [Suspect]
     Active Substance: CADONILIMAB
     Indication: Cervix carcinoma
     Dosage: FOR SIX CYCLES
     Route: 065
  9. CADONILIMAB [Suspect]
     Active Substance: CADONILIMAB
     Indication: Endometrial cancer
  10. CADONILIMAB [Suspect]
     Active Substance: CADONILIMAB
     Indication: Endometrial sarcoma
  11. CADONILIMAB [Suspect]
     Active Substance: CADONILIMAB
     Indication: Genitourinary melanoma
  12. CADONILIMAB [Suspect]
     Active Substance: CADONILIMAB
     Indication: Vulval cancer
  13. CADONILIMAB [Suspect]
     Active Substance: CADONILIMAB
     Indication: Choriocarcinoma
  14. CADONILIMAB [Suspect]
     Active Substance: CADONILIMAB
     Indication: Ovarian cancer
  15. PACLITAXEL [Suspect]
     Active Substance: PACLITAXEL
     Indication: Cervix carcinoma
     Dosage: FOR SIX CYCLES
     Route: 065
  16. PACLITAXEL [Suspect]
     Active Substance: PACLITAXEL
     Indication: Endometrial cancer
  17. PACLITAXEL [Suspect]
     Active Substance: PACLITAXEL
     Indication: Endometrial sarcoma
  18. PACLITAXEL [Suspect]
     Active Substance: PACLITAXEL
     Indication: Genitourinary melanoma
  19. PACLITAXEL [Suspect]
     Active Substance: PACLITAXEL
     Indication: Vulval cancer
  20. PACLITAXEL [Suspect]
     Active Substance: PACLITAXEL
     Indication: Choriocarcinoma
  21. PACLITAXEL [Suspect]
     Active Substance: PACLITAXEL
     Indication: Ovarian cancer
  22. CISPLATIN [Suspect]
     Active Substance: CISPLATIN
     Indication: Cervix carcinoma
     Dosage: FOR SIX CYCLES
     Route: 065
  23. CISPLATIN [Suspect]
     Active Substance: CISPLATIN
     Indication: Endometrial cancer
  24. CISPLATIN [Suspect]
     Active Substance: CISPLATIN
     Indication: Endometrial sarcoma
  25. CISPLATIN [Suspect]
     Active Substance: CISPLATIN
     Indication: Genitourinary melanoma
  26. CISPLATIN [Suspect]
     Active Substance: CISPLATIN
     Indication: Vulval cancer
  27. CISPLATIN [Suspect]
     Active Substance: CISPLATIN
     Indication: Choriocarcinoma
  28. CISPLATIN [Suspect]
     Active Substance: CISPLATIN
     Indication: Ovarian cancer
  29. CARBOPLATIN [Suspect]
     Active Substance: CARBOPLATIN
     Indication: Cervix carcinoma
     Dosage: FOR SIX CYCLES
     Route: 065
  30. CARBOPLATIN [Suspect]
     Active Substance: CARBOPLATIN
     Indication: Endometrial cancer
  31. CARBOPLATIN [Suspect]
     Active Substance: CARBOPLATIN
     Indication: Endometrial sarcoma
  32. CARBOPLATIN [Suspect]
     Active Substance: CARBOPLATIN
     Indication: Genitourinary melanoma
  33. CARBOPLATIN [Suspect]
     Active Substance: CARBOPLATIN
     Indication: Vulval cancer
  34. CARBOPLATIN [Suspect]
     Active Substance: CARBOPLATIN
     Indication: Choriocarcinoma
  35. CARBOPLATIN [Suspect]
     Active Substance: CARBOPLATIN
     Indication: Ovarian cancer

REACTIONS (15)
  - Anaemia [Unknown]
  - Myelosuppression [Unknown]
  - Vomiting [Unknown]
  - Nausea [Unknown]
  - Rash [Unknown]
  - Pruritus [Unknown]
  - Hyperthyroidism [Unknown]
  - Aspartate aminotransferase increased [Unknown]
  - Alanine aminotransferase increased [Unknown]
  - Fatigue [Unknown]
  - Immune-mediated myocarditis [Unknown]
  - Cardiotoxicity [Unknown]
  - Osteitis [Unknown]
  - Immune-mediated myositis [Unknown]
  - Infusion related reaction [Unknown]
